FAERS Safety Report 4315320-9 (Version None)
Quarter: 2004Q1

REPORT INFORMATION
  Report Type: 
  Country: None (occurrence: None)
  Receive Date: 20040309
  Receipt Date: 20040224
  Transmission Date: 20041129
  Serious: Yes (Hospitalization)
  Sender: FDA-Public Use
  Company Number: 03P-062-0224699-00

PATIENT
  Age: 45 Year
  Sex: Female
  Weight: 85 kg

DRUGS (7)
  1. HUMIRA [Suspect]
     Indication: RHEUMATOID ARTHRITIS
     Dosage: 40 MG, 1 IN 2 WK, SUBCUTANEOUS
     Route: 058
     Dates: start: 20030521, end: 20030521
  2. PREDNISOLONE [Concomitant]
  3. MELOXICAM [Concomitant]
  4. LEFLUNOMIDE [Concomitant]
  5. METHOTREXATE SODIUM [Concomitant]
  6. SANDOCOL D FORTE [Concomitant]
  7. CO-DIOVAN [Concomitant]

REACTIONS (7)
  - BACTERIA URINE [None]
  - CERVICOBRACHIAL SYNDROME [None]
  - HEADACHE [None]
  - LUNG CREPITATION [None]
  - NAUSEA [None]
  - NECK PAIN [None]
  - OEDEMA PERIPHERAL [None]
